FAERS Safety Report 5341255-9 (Version None)
Quarter: 2007Q2

REPORT INFORMATION
  Report Type: 
  Country: None (occurrence: None)
  Receive Date: 20070404
  Receipt Date: 20070131
  Transmission Date: 20071010
  Serious: Yes (Other)
  Sender: FDA-Public Use
  Company Number: 2007008278

PATIENT

DRUGS (3)
  1. GEODON [Suspect]
     Dosage: 160 MG (80 MG, 1 IN 1 D)
  2. PAXIL [Concomitant]
  3. TRAZODONE HCL [Concomitant]

REACTIONS (1)
  - CONVULSION [None]
